FAERS Safety Report 8966256 (Version 2)
Quarter: 2013Q2

REPORT INFORMATION
  Report Type: Spontaneous
  Country: US (occurrence: US)
  Receive Date: 20121217
  Receipt Date: 20130416
  Transmission Date: 20140414
  Serious: Yes (Other)
  Sender: FDA-Public Use
  Company Number: US-AMGEN-USASP2012078958

PATIENT
  Age: 53 Year
  Sex: Female
  Weight: 68.03 kg

DRUGS (7)
  1. ENBREL [Suspect]
     Indication: RHEUMATOID ARTHRITIS
     Dosage: 50 MG, WEEKLY
     Route: 058
     Dates: start: 20100119, end: 20121212
  2. MORPHINE SULFATE [Concomitant]
     Dosage: 100 MG, UNK
  3. IMITREX                            /01044801/ [Concomitant]
     Dosage: 25 MG, UNK
  4. TYLENOL ARTHRITIS [Concomitant]
     Dosage: 650 MG, UNK
  5. TYLENOL COLD                       /00384601/ [Concomitant]
     Dosage: UNK
  6. ULTRAM                             /00599202/ [Concomitant]
     Dosage: 50 MG, UNK
  7. ZANAFLEX [Concomitant]
     Dosage: 2 MG, UNK

REACTIONS (9)
  - Knee arthroplasty [Recovered/Resolved]
  - Post procedural haemorrhage [Recovered/Resolved]
  - Procedural pain [Recovered/Resolved]
  - Loss of consciousness [Recovered/Resolved]
  - Fall [Recovered/Resolved]
  - Joint injury [Recovered/Resolved]
  - Arthralgia [Not Recovered/Not Resolved]
  - Drug effect decreased [Unknown]
  - Injection site pain [Not Recovered/Not Resolved]
